FAERS Safety Report 5491256-5 (Version None)
Quarter: 2007Q4

REPORT INFORMATION
  Report Type: 
  Country: None (occurrence: None)
  Receive Date: 20071019
  Receipt Date: 20071010
  Transmission Date: 20080405
  Serious: Yes (Hospitalization)
  Sender: FDA-Public Use
  Company Number: PL-MERCK-0710POL00018

PATIENT
  Age: 6 Year
  Sex: Male
  Weight: 30 kg

DRUGS (4)
  1. SINGULAIR [Suspect]
     Indication: ASTHMA
     Route: 048
     Dates: start: 20060203, end: 20060210
  2. SINGULAIR [Suspect]
     Route: 048
     Dates: start: 20071001
  3. FLUTICASONE PROPIONATE [Concomitant]
     Indication: ASTHMA
     Dates: start: 20060203
  4. LORATADINE [Concomitant]
     Route: 065

REACTIONS (4)
  - BALANCE DISORDER [None]
  - HOSPITALISATION [None]
  - HYPERSOMNIA [None]
  - VERTIGO [None]
